FAERS Safety Report 15768349 (Version 4)
Quarter: 2020Q3

REPORT INFORMATION
  Report Type: Report from Study
  Country: CR (occurrence: CR)
  Receive Date: 20181227
  Receipt Date: 20200806
  Transmission Date: 20201102
  Serious: Yes (Other)
  Sender: FDA-Public Use
  Company Number: PHHY2018CR196279

PATIENT
  Sex: Male
  Weight: 72 kg

DRUGS (2)
  1. GILENYA [Suspect]
     Active Substance: FINGOLIMOD HYDROCHLORIDE
     Dosage: 1 DF, QD (IN THE MORNING)
     Route: 065
  2. GILENYA [Suspect]
     Active Substance: FINGOLIMOD HYDROCHLORIDE
     Indication: RELAPSING-REMITTING MULTIPLE SCLEROSIS
     Dosage: 0.5 MG, QMO
     Route: 048
     Dates: start: 20180821

REACTIONS (9)
  - Blindness [Unknown]
  - Ocular discomfort [Unknown]
  - Eye discharge [Unknown]
  - Eye irritation [Unknown]
  - Visual impairment [Unknown]
  - Vision blurred [Unknown]
  - Condition aggravated [Unknown]
  - Optic neuritis [Unknown]
  - Metamorphopsia [Unknown]
